FAERS Safety Report 6116575-0 (Version None)
Quarter: 2009Q1

REPORT INFORMATION
  Report Type: 
  Country: None (occurrence: None)
  Receive Date: 20090314
  Receipt Date: 20081218
  Transmission Date: 20090719
  Serious: Yes (Other)
  Sender: FDA-Public Use
  Company Number: US-ABBOTT-08P-163-0493786-00

PATIENT
  Sex: Female
  Weight: 74.91 kg

DRUGS (2)
  1. HUMIRA [Suspect]
     Indication: RHEUMATOID ARTHRITIS
     Dates: start: 20050101, end: 20060101
  2. HUMIRA [Suspect]
     Dosage: PEN
     Dates: start: 20060101

REACTIONS (2)
  - INJECTION SITE HAEMATOMA [None]
  - SQUAMOUS CELL CARCINOMA [None]
